FAERS Safety Report 11491929 (Version 1)
Quarter: 2015Q3

REPORT INFORMATION
  Report Type: Spontaneous
  Country: US (occurrence: None)
  Receive Date: 20150910
  Receipt Date: 20150910
  Transmission Date: 20151125
  Serious: Yes (Death)
  Sender: FDA-Public Use
  Company Number: None

PATIENT
  Age: 74 Year
  Sex: Male
  Weight: 77.11 kg

DRUGS (1)
  1. ZYDELIG [Suspect]
     Active Substance: IDELALISIB
     Indication: CHRONIC LYMPHOCYTIC LEUKAEMIA
     Dosage: 1 PILL
     Route: 048
     Dates: start: 20150415, end: 20150718

REACTIONS (5)
  - Swelling [None]
  - Stomatitis [None]
  - Diarrhoea [None]
  - Sepsis [None]
  - Gastrointestinal disorder [None]

NARRATIVE: CASE EVENT DATE: 20150822
